FAERS Safety Report 15912734 (Version 2)
Quarter: 2019Q1

REPORT INFORMATION
  Report Type: Spontaneous
  Country: RU (occurrence: RU)
  Receive Date: 20190204
  Receipt Date: 20190313
  Transmission Date: 20190417
  Serious: Yes (Other)
  Sender: FDA-Public Use
  Company Number: RU-CELGENEUS-RUS-20190108937

PATIENT
  Sex: Male

DRUGS (1)
  1. OTEZLA [Suspect]
     Active Substance: APREMILAST
     Indication: PSORIASIS
     Dosage: 60 MILLIGRAM
     Route: 048
     Dates: start: 20181228

REACTIONS (3)
  - Pyelonephritis [Recovering/Resolving]
  - Diarrhoea [Recovering/Resolving]
  - Prostatitis [Recovering/Resolving]

NARRATIVE: CASE EVENT DATE: 20181230
